FAERS Safety Report 6358474-5 (Version None)
Quarter: 2009Q3

REPORT INFORMATION
  Report Type: 
  Country: None (occurrence: None)
  Receive Date: 20090916
  Receipt Date: 20090310
  Transmission Date: 20100115
  Serious: No
  Sender: FDA-Public Use
  Company Number: US-AMGEN-KDL337683

PATIENT
  Sex: Male

DRUGS (5)
  1. NEUPOGEN [Suspect]
     Indication: CHEMOTHERAPY
     Dates: start: 20090304
  2. BLEOMYCIN [Concomitant]
  3. VINBLASTINE [Concomitant]
  4. DACARBAZINE [Concomitant]
  5. ADRIAMYCIN PFS [Concomitant]

REACTIONS (1)
  - URTICARIA [None]
